FAERS Safety Report 8288127-8 (Version None)
Quarter: 2012Q2

REPORT INFORMATION
  Report Type: 
  Country: None (occurrence: None)
  Receive Date: 20120416
  Receipt Date: 20120402
  Transmission Date: 20120825
  Serious: Yes (Hospitalization, Other)
  Sender: FDA-Public Use
  Company Number: US-MYLANLABS-2012S1007427

PATIENT
  Sex: Male
  Weight: 154.22 kg

DRUGS (66)
  1. AMARYL [Concomitant]
  2. ASPIRIN [Concomitant]
  3. FLEXERIL [Concomitant]
  4. GLUCOPHAGE [Concomitant]
  5. POTASSIUM CHLORIDE [Concomitant]
  6. NYSTATIN [Concomitant]
  7. TYLENOL (CAPLET) [Concomitant]
  8. CENTRUM [Concomitant]
  9. CIPROFLOXACIN HCL [Concomitant]
  10. DOPAMINE HCL [Concomitant]
  11. PHENERGAN HCL [Concomitant]
  12. SILVER SULFADIAZINE [Concomitant]
  13. VANCOMYCIN [Concomitant]
  14. COUMADIN [Concomitant]
  15. COZAAR [Concomitant]
  16. INSULIN N [Concomitant]
  17. REGULAR INSULIN [Concomitant]
  18. LEVOTHYROXINE SODIUM [Concomitant]
  19. LOVENOX [Concomitant]
  20. NITROGLYCERIN [Concomitant]
  21. SPIRONOLACTONE [Concomitant]
  22. TRAMADOL HCL [Concomitant]
     Dosage: PRN
  23. XANAX [Concomitant]
  24. ANCEF /00288502/ [Concomitant]
  25. COLACE [Concomitant]
  26. GEMFIBROZIL [Concomitant]
  27. LASIX [Concomitant]
  28. NASONEX [Concomitant]
  29. PANMIST DM [Concomitant]
  30. PENICILLIN [Concomitant]
  31. POTASSIUM [Concomitant]
  32. AMITRIPTYLINE HCL [Concomitant]
  33. AMOXICILLIN [Concomitant]
  34. ATENOLOL [Concomitant]
     Route: 048
  35. AVANDIA [Concomitant]
  36. CODEINE SULFATE [Concomitant]
  37. GUAIFENESIN [Concomitant]
  38. NASACORT [Concomitant]
  39. NITRO-BID [Concomitant]
     Route: 048
  40. NPH INSULIN [Concomitant]
     Route: 058
  41. OXYCODONE HCL [Concomitant]
  42. VERAPAMIL [Concomitant]
  43. CITALOPRAM [Concomitant]
  44. FUROSEMIDE [Concomitant]
  45. GLYBURIDE [Concomitant]
  46. KEFLEX [Concomitant]
  47. NITROGLYCERIN [Concomitant]
  48. PAXIL [Concomitant]
  49. TRAZODONE HCL [Concomitant]
  50. TRIAMCINOLONE [Concomitant]
  51. ANUSOL HC [Concomitant]
  52. AUGMENTIN '125' [Concomitant]
  53. AUGMENTIN XR [Concomitant]
  54. AVELOX [Concomitant]
  55. HYDRALAZINE HCL [Concomitant]
  56. POTASSIUM CHLORIDE [Concomitant]
     Route: 048
  57. MAGNESIUM OXIDE [Concomitant]
  58. METOLAZONE [Concomitant]
  59. ZAROXOLYN [Concomitant]
  60. DIGOXIN [Suspect]
     Indication: PRODUCT USED FOR UNKNOWN INDICATION
  61. CAPOTEN [Concomitant]
  62. CAPTOPRIL [Concomitant]
  63. COREG CR [Concomitant]
  64. ENTEX PSE [Concomitant]
  65. LEVAQUIN [Concomitant]
     Dosage: FOR 10 DAYS
  66. LORTAB [Concomitant]

REACTIONS (159)
  - SLEEP APNOEA SYNDROME [None]
  - BACK PAIN [None]
  - CARDIAC FAILURE CONGESTIVE [None]
  - EXERCISE TOLERANCE DECREASED [None]
  - MUSCULAR WEAKNESS [None]
  - MOOD SWINGS [None]
  - PICKWICKIAN SYNDROME [None]
  - BLADDER NEOPLASM [None]
  - UNRESPONSIVE TO STIMULI [None]
  - LEFT VENTRICULAR DYSFUNCTION [None]
  - MENTAL STATUS CHANGES [None]
  - HYPOKALAEMIA [None]
  - CARDIOMYOPATHY [None]
  - PSORIASIS [None]
  - ELECTROCARDIOGRAM ABNORMAL [None]
  - OXYGEN SATURATION ABNORMAL [None]
  - ISCHAEMIA [None]
  - DILATATION VENTRICULAR [None]
  - LUNG INFILTRATION [None]
  - SINUS DISORDER [None]
  - HYPOACUSIS [None]
  - DIABETES MELLITUS INADEQUATE CONTROL [None]
  - RESPIRATORY TRACT CONGESTION [None]
  - AMNESIA [None]
  - MUSCLE SPASMS [None]
  - PROCTALGIA [None]
  - ANXIETY [None]
  - EAR PAIN [None]
  - STENT PLACEMENT [None]
  - BLADDER MASS [None]
  - PRURITUS [None]
  - LOSS OF CONSCIOUSNESS [None]
  - NODAL RHYTHM [None]
  - CEREBROVASCULAR ACCIDENT [None]
  - PHARYNGEAL ERYTHEMA [None]
  - CARDIAC VALVE DISEASE [None]
  - TENDERNESS [None]
  - SINUS ARRHYTHMIA [None]
  - CHEST DISCOMFORT [None]
  - ATRIAL FIBRILLATION [None]
  - ARTHRITIS [None]
  - DYSPNOEA [None]
  - RHINITIS [None]
  - NERVOUSNESS [None]
  - NASAL CONGESTION [None]
  - BACK INJURY [None]
  - TOOTH ABSCESS [None]
  - UPPER AIRWAY RESISTANCE SYNDROME [None]
  - DEEP VEIN THROMBOSIS [None]
  - INSOMNIA [None]
  - CELLULITIS [None]
  - OSTEOARTHRITIS [None]
  - PROSTATIC OBSTRUCTION [None]
  - ERYTHEMA OF EYELID [None]
  - INFLAMMATION [None]
  - TOXICITY TO VARIOUS AGENTS [None]
  - SINUS CONGESTION [None]
  - ASTHENIA [None]
  - ARTERIOSCLEROSIS [None]
  - BREATH SOUNDS ABNORMAL [None]
  - HEART RATE ABNORMAL [None]
  - WOUND DRAINAGE [None]
  - OEDEMA PERIPHERAL [None]
  - RECTAL HAEMORRHAGE [None]
  - HAEMORRHOIDS [None]
  - BLOOD GLUCOSE INCREASED [None]
  - PULMONARY HYPERTENSION [None]
  - PRODUCTIVE COUGH [None]
  - HAEMOPTYSIS [None]
  - TREMOR [None]
  - BRONCHITIS [None]
  - HYPERTENSION [None]
  - INTERVERTEBRAL DISC DEGENERATION [None]
  - MICTURITION URGENCY [None]
  - MUSCULOSKELETAL PAIN [None]
  - CANDIDIASIS [None]
  - RENAL FAILURE [None]
  - NAUSEA [None]
  - SKIN ULCER [None]
  - ORTHOSTATIC INTOLERANCE [None]
  - RHINITIS ALLERGIC [None]
  - CONFUSIONAL STATE [None]
  - EXCORIATION [None]
  - PULMONARY OEDEMA [None]
  - TYPE 2 DIABETES MELLITUS [None]
  - ARRHYTHMIA [None]
  - OBESITY [None]
  - STRESS [None]
  - HYPERHIDROSIS [None]
  - MYOCARDIAL ISCHAEMIA [None]
  - CORONARY ARTERY DISEASE [None]
  - SKIN LESION [None]
  - ROTATOR CUFF SYNDROME [None]
  - BLADDER CANCER [None]
  - PARAESTHESIA [None]
  - POLLAKIURIA [None]
  - EYE INFECTION [None]
  - CHRONIC OBSTRUCTIVE PULMONARY DISEASE [None]
  - OLIGURIA [None]
  - VOMITING [None]
  - FALL [None]
  - STRIDOR [None]
  - CARDIAC PACEMAKER INSERTION [None]
  - UPPER-AIRWAY COUGH SYNDROME [None]
  - BALANCE DISORDER [None]
  - ARTHRALGIA [None]
  - LABORATORY TEST ABNORMAL [None]
  - RALES [None]
  - LEFT VENTRICULAR HYPERTROPHY [None]
  - DILATATION ATRIAL [None]
  - BUNDLE BRANCH BLOCK RIGHT [None]
  - WOUND [None]
  - PAIN [None]
  - MALAISE [None]
  - FATIGUE [None]
  - DYSPNOEA EXERTIONAL [None]
  - PAIN IN EXTREMITY [None]
  - MYOCARDIAL INFARCTION [None]
  - EPISTAXIS [None]
  - NOCTURIA [None]
  - ORTHOPNOEA [None]
  - WEIGHT INCREASED [None]
  - VENTRICULAR TACHYCARDIA [None]
  - CARDIAC MURMUR [None]
  - INTERSTITIAL LUNG DISEASE [None]
  - SKIN WARM [None]
  - PROSTATOMEGALY [None]
  - HAEMATURIA [None]
  - CHEST PAIN [None]
  - NASOPHARYNGITIS [None]
  - CYANOSIS [None]
  - HYPOXIA [None]
  - CORONARY ARTERY STENOSIS [None]
  - COUGH [None]
  - RESTLESS LEGS SYNDROME [None]
  - HEADACHE [None]
  - DIABETIC NEUROPATHY [None]
  - BENIGN PROSTATIC HYPERPLASIA [None]
  - ABSCESS LIMB [None]
  - SYNCOPE [None]
  - SINUS BRADYCARDIA [None]
  - PALLOR [None]
  - VENTRICULAR EXTRASYSTOLES [None]
  - DISORIENTATION [None]
  - APHASIA [None]
  - HYPOTHYROIDISM [None]
  - TRANSIENT ISCHAEMIC ATTACK [None]
  - TACHYPNOEA [None]
  - POOR QUALITY SLEEP [None]
  - MUSCULOSKELETAL STIFFNESS [None]
  - DEPRESSION [None]
  - WHEEZING [None]
  - NORMOCHROMIC NORMOCYTIC ANAEMIA [None]
  - BLISTER [None]
  - ECCHYMOSIS [None]
  - DIABETIC COMPLICATION [None]
  - HYPOTENSION [None]
  - CONSTIPATION [None]
  - SINUSITIS [None]
